FAERS Safety Report 5293721-2 (Version None)
Quarter: 2007Q2

REPORT INFORMATION
  Report Type: 
  Country: None (occurrence: None)
  Receive Date: 20070405
  Receipt Date: 20070320
  Transmission Date: 20071010
  Serious: Yes (Other)
  Sender: FDA-Public Use
  Company Number: 070327-0000367

PATIENT
  Sex: 0

DRUGS (5)
  1. ASPARAGINASE (ASPARAGINASE) [Suspect]
     Indication: ACUTE LYMPHOCYTIC LEUKAEMIA
     Dosage: 100000 IU/M 2; X6 DAYS; IM
     Route: 030
  2. VINCRISTINE [Concomitant]
  3. PREDNISONE TAB [Concomitant]
  4. DAUNORUBICIN HCL [Concomitant]
  5. ORAL CONTRACEPTIVE NOS [Concomitant]

REACTIONS (2)
  - CONVULSION [None]
  - THROMBOSIS [None]
